FAERS Safety Report 25309143 (Version 1)
Quarter: 2025Q2

REPORT INFORMATION
  Report Type: Spontaneous
  Country: AT (occurrence: AT)
  Receive Date: 20250513
  Receipt Date: 20250513
  Transmission Date: 20250717
  Serious: Yes (Other)
  Sender: AMGEN
  Company Number: AT-AMGEN-AUTSP2025089984

PATIENT
  Age: 43 Year
  Sex: Male

DRUGS (4)
  1. VECTIBIX [Suspect]
     Active Substance: PANITUMUMAB
     Indication: Gastrointestinal adenocarcinoma
     Route: 065
     Dates: start: 20250115, end: 202503
  2. OXALIPLATIN [Concomitant]
     Active Substance: OXALIPLATIN
     Route: 065
  3. FLUOROURACIL [Concomitant]
     Active Substance: FLUOROURACIL
     Route: 065
  4. LEUCOVORIN [Concomitant]
     Active Substance: LEUCOVORIN\LEUCOVORIN CALCIUM
     Route: 065

REACTIONS (7)
  - Polyneuropathy [Unknown]
  - Tongue discomfort [Unknown]
  - Stomatitis [Unknown]
  - Folliculitis [Unknown]
  - Nausea [Unknown]
  - Skin toxicity [Unknown]
  - General physical health deterioration [Unknown]

NARRATIVE: CASE EVENT DATE: 20250101
